FAERS Safety Report 24386518 (Version 2)
Quarter: 2024Q4

REPORT INFORMATION
  Report Type: Spontaneous
  Country: JP (occurrence: JP)
  Receive Date: 20241002
  Receipt Date: 20241014
  Transmission Date: 20250114
  Serious: No
  Sender: ABBVIE
  Company Number: JP-ABBVIE-5943588

PATIENT
  Age: 77 Year
  Sex: Male

DRUGS (3)
  1. SILODOSIN [Suspect]
     Active Substance: SILODOSIN
     Indication: Benign prostatic hyperplasia
     Dosage: 8MG/DAY
     Route: 048
  2. TELTHIA [Concomitant]
     Indication: Product used for unknown indication
     Route: 048
  3. EPINASTINE [Concomitant]
     Active Substance: EPINASTINE
     Indication: Product used for unknown indication

REACTIONS (1)
  - Floppy iris syndrome [Unknown]
